FAERS Safety Report 5268641-X (Version None)
Quarter: 2007Q1

REPORT INFORMATION
  Report Type: 
  Country: None (occurrence: None)
  Receive Date: 20070315
  Receipt Date: 20070315
  Transmission Date: 20070707
  Serious: Yes (Other)
  Sender: FDA-Public Use
  Company Number: None

PATIENT
  Age: 66 Year
  Sex: Male
  Weight: 70.3 kg

DRUGS (1)
  1. CYMBALTA [Suspect]

REACTIONS (2)
  - NAUSEA [None]
  - VOMITING [None]
